FAERS Safety Report 12774819 (Version 2)
Quarter: 2016Q4

REPORT INFORMATION
  Report Type: Spontaneous
  Country: US (occurrence: US)
  Receive Date: 20160923
  Receipt Date: 20161017
  Transmission Date: 20170207
  Serious: No
  Sender: FDA-Public Use
  Company Number: US-GLAXOSMITHKLINE-US2016136978

PATIENT
  Age: 56 Year
  Sex: Male

DRUGS (1)
  1. EXCEDRIN MIGRAINE [Suspect]
     Active Substance: ACETAMINOPHEN\ASPIRIN\CAFFEINE
     Indication: HEADACHE
     Dosage: 2 DF, UNK, 2 PILLS EVERY DAY
     Dates: start: 20160913

REACTIONS (3)
  - Off label use [Unknown]
  - Product quality issue [Unknown]
  - Incorrect drug administration duration [Unknown]
